FAERS Safety Report 7146431-0 (Version None)
Quarter: 2010Q4

REPORT INFORMATION
  Report Type: 
  Country: None (occurrence: None)
  Receive Date: 20101208
  Receipt Date: 20100910
  Transmission Date: 20110411
  Serious: No
  Sender: FDA-Public Use
  Company Number: US-BRISTOL-MYERS SQUIBB COMPANY-15281330

PATIENT
  Age: 77 Year
  Sex: Female

DRUGS (5)
  1. PRAVACHOL [Suspect]
  2. LOVASTATIN [Suspect]
  3. SIMVASTATIN [Suspect]
  4. CRESTOR [Suspect]
  5. AGGRENOX [Suspect]

REACTIONS (6)
  - ABDOMINAL PAIN UPPER [None]
  - BLOOD CHOLESTEROL INCREASED [None]
  - CHEST PAIN [None]
  - MALAISE [None]
  - MOVEMENT DISORDER [None]
  - MYALGIA [None]
